FAERS Safety Report 9305212 (Version 1)
Quarter: 2013Q2

REPORT INFORMATION
  Report Type: Spontaneous
  Country: CO (occurrence: CO)
  Receive Date: 20130523
  Receipt Date: 20130523
  Transmission Date: 20140414
  Serious: Yes (Death, Hospitalization, Other)
  Sender: FDA-Public Use
  Company Number: CO-AMGEN-COLSP2013036064

PATIENT
  Age: 55 Year
  Sex: Male

DRUGS (3)
  1. ENBREL [Suspect]
     Indication: RHEUMATOID ARTHRITIS
     Dosage: 50 MG, WEEKLY
     Route: 058
     Dates: start: 201208, end: 20121029
  2. PREDNISOLON                        /00016201/ [Concomitant]
     Indication: RHEUMATOID ARTHRITIS
     Dosage: 50 MG, AS NEEDED
     Route: 048
     Dates: start: 2011, end: 201211
  3. METHOTREXATE [Concomitant]
     Indication: RHEUMATOID ARTHRITIS
     Dosage: 4 TABLETS ON SATURDAY AND 4 TABLETS ON SUNDAY
     Route: 048
     Dates: start: 2011, end: 201211

REACTIONS (7)
  - Intracranial aneurysm [Fatal]
  - Coma [Unknown]
  - Fatigue [Unknown]
  - Somnolence [Unknown]
  - Headache [Unknown]
  - Tuberculosis [Unknown]
  - Encephalitic infection [Unknown]
